FAERS Safety Report 9286318 (Version 1)
Quarter: 2013Q2

REPORT INFORMATION
  Report Type: Spontaneous
  Country: US (occurrence: None)
  Receive Date: 20130510
  Receipt Date: 20130510
  Transmission Date: 20140414
  Serious: Yes (Hospitalization)
  Sender: FDA-Public Use
  Company Number: None

PATIENT
  Age: 82 Year
  Sex: Female
  Weight: 53.5 kg

DRUGS (3)
  1. TEMAZEPAM [Suspect]
     Indication: INSOMNIA
     Route: 048
  2. TRAZODONE [Suspect]
     Indication: INSOMNIA
     Route: 048
  3. NEURONTIN [Suspect]
     Indication: OSTEOPOROSIS
     Route: 048

REACTIONS (1)
  - Urinary tract infection [None]
